FAERS Safety Report 8818611 (Version 3)
Quarter: 2012Q4

REPORT INFORMATION
  Report Type: 
  Country: US (occurrence: US)
  Receive Date: 20121001
  Receipt Date: 20121107
  Transmission Date: 20130627
  Serious: Yes (Death)
  Sender: FDA-Public Use
  Company Number: US-PFIZER INC-2012238759

PATIENT
  Age: 90 Year
  Sex: Female

DRUGS (1)
  1. AROMASIN [Suspect]
     Indication: MALIGNANT NEOPLASM OF FEMALE BREAST, UNSPECIFIED
     Dosage: 25 mg, UNK
     Dates: start: 20120731

REACTIONS (2)
  - Disease progression [Fatal]
  - Breast cancer female [Fatal]
